FAERS Safety Report 19615406 (Version 1)
Quarter: 2021Q3

REPORT INFORMATION
  Report Type: Report from Study
  Country: US (occurrence: US)
  Receive Date: 20210727
  Receipt Date: 20210727
  Transmission Date: 20211014
  Serious: Yes (Hospitalization)
  Sender: FDA-Public Use
  Company Number: US-CELGENEUS-USA-20210704780

PATIENT
  Age: 74 Year
  Sex: Male
  Weight: 101.2 kg

DRUGS (5)
  1. CYCLOPHOSPHAMIDE. [Suspect]
     Active Substance: CYCLOPHOSPHAMIDE
     Dosage: 680 MILLIGRAM
     Route: 041
     Dates: start: 20201017, end: 20201018
  2. FLUDARABINE [Suspect]
     Active Substance: FLUDARABINE PHOSPHATE
     Dosage: 70 MILLIGRAM
     Route: 041
     Dates: start: 20201017, end: 20201018
  3. JCAR017 [Suspect]
     Active Substance: LISOCABTAGENE MARALEUCEL
     Indication: CHRONIC LYMPHOCYTIC LEUKAEMIA
     Dosage: 100 X 10^6 CAR + T CELLS
     Route: 041
     Dates: start: 20201021, end: 20201021
  4. CYCLOPHOSPHAMIDE. [Suspect]
     Active Substance: CYCLOPHOSPHAMIDE
     Indication: CHRONIC LYMPHOCYTIC LEUKAEMIA
     Dosage: 681 MILLIGRAM
     Route: 041
     Dates: start: 20201016, end: 20201016
  5. FLUDARABINE [Suspect]
     Active Substance: FLUDARABINE PHOSPHATE
     Indication: CHRONIC LYMPHOCYTIC LEUKAEMIA
     Dosage: 68 MILLIGRAM
     Route: 041
     Dates: start: 20201016, end: 20201016

REACTIONS (1)
  - Bronchiectasis [Unknown]

NARRATIVE: CASE EVENT DATE: 20210717
